FAERS Safety Report 10354101 (Version 2)
Quarter: 2014Q3

REPORT INFORMATION
  Report Type: Spontaneous
  Country: US (occurrence: US)
  Receive Date: 20140731
  Receipt Date: 20140918
  Transmission Date: 20150326
  Serious: Yes (Other)
  Sender: FDA-Public Use
  Company Number: US-PFIZER INC-2014209371

PATIENT
  Age: 67 Year
  Sex: Female
  Weight: 57 kg

DRUGS (26)
  1. ONDANSETRON [Concomitant]
     Active Substance: ONDANSETRON
     Indication: NAUSEA
     Dosage: 8 MG, 4X/DAY (Q6 PRN)
     Route: 048
     Dates: start: 20110331
  2. PHENERGAN [Concomitant]
     Active Substance: PROMETHAZINE HYDROCHLORIDE
     Indication: NAUSEA
     Dosage: 25 MG, UNK (Q4 PRN)
     Route: 048
     Dates: start: 20110406, end: 201404
  3. TRIAMTERENE. [Concomitant]
     Active Substance: TRIAMTERENE
     Indication: HYPERTENSION
     Dosage: 37.5 MG, 1X/DAY
     Route: 048
     Dates: start: 2003, end: 20110420
  4. VENOFER [Concomitant]
     Active Substance: IRON SUCROSE
     Indication: ANAEMIA
     Dosage: 100 MG, WEEKLY
     Route: 042
     Dates: start: 20110302, end: 20110505
  5. LASIX [Concomitant]
     Active Substance: FUROSEMIDE
     Dosage: 20 MG, AS NEEDED (20 MG PO X 3 DAY PRN)
     Route: 048
     Dates: start: 20140529
  6. THEOPHYLLINE [Concomitant]
     Active Substance: THEOPHYLLINE
     Indication: BRADYCARDIA
     Dosage: 100 MG, 1X/DAY
     Route: 048
     Dates: start: 20140217, end: 20140219
  7. HEMOCYTE [Concomitant]
     Indication: ANAEMIA
     Dosage: 324 MG, 1X/DAY
     Route: 048
     Dates: start: 20110511, end: 20120208
  8. PROCERA [Concomitant]
     Active Substance: DIETARY SUPPLEMENT
     Indication: MEMORY IMPAIRMENT
     Dosage: (2 TABS PO BID)
     Route: 048
     Dates: start: 20130706, end: 201311
  9. PNEUMONIA VACCINE [Concomitant]
     Active Substance: PNEUMOCOCCAL VACCINE POLYVALENT
     Indication: PROPHYLAXIS
     Dosage: UNK (1 INJ. SQX1)
     Route: 058
     Dates: start: 20131009, end: 20131009
  10. VESICARE [Concomitant]
     Active Substance: SOLIFENACIN SUCCINATE
     Indication: URINARY INCONTINENCE
     Dosage: 5 MG, 1X/DAY
     Route: 048
     Dates: start: 20140217, end: 20140221
  11. CIPROFLOXACIN. [Concomitant]
     Active Substance: CIPROFLOXACIN
     Indication: URINARY TRACT INFECTION
     Dosage: 500 MG, 2X/DAY
     Route: 048
     Dates: start: 20140613, end: 20140623
  12. FLUSHOT [Concomitant]
     Indication: PROPHYLAXIS
     Dosage: (1 INJ. SQX1)
     Route: 058
     Dates: start: 20131009, end: 20131009
  13. LASIX [Concomitant]
     Active Substance: FUROSEMIDE
     Dosage: 20 MG, UNK (20 MG PO X 3 DAY)
     Route: 048
     Dates: start: 20140503, end: 20140506
  14. KEPPRA [Concomitant]
     Active Substance: LEVETIRACETAM
     Indication: PROPHYLAXIS
     Dosage: 500 MG, 2X/DAY
     Dates: start: 200909, end: 20110712
  15. ALOXI [Concomitant]
     Active Substance: PALONOSETRON HYDROCHLORIDE
     Indication: NAUSEA
     Dosage: 250 UG, 1X/DAY
     Route: 042
     Dates: start: 20110406, end: 20110406
  16. XALKORI [Suspect]
     Active Substance: CRIZOTINIB
     Indication: NON-SMALL CELL LUNG CANCER
     Dosage: 250 MG, 2X/DAY
     Route: 048
     Dates: start: 20110330, end: 20140618
  17. IMODIUM [Concomitant]
     Active Substance: LOPERAMIDE HYDROCHLORIDE
     Indication: DIARRHOEA
     Dosage: UNK (1 PO QBM PRN)
     Route: 048
     Dates: start: 20110405
  18. CALCIUM+ VIT D [Concomitant]
     Indication: HYPOCALCAEMIA
     Dosage: (500/200MG QD PO)
     Route: 048
     Dates: start: 20110621, end: 20120208
  19. AIRBORNE [Concomitant]
     Active Substance: HERBALS\MINERALS\VITAMINS
     Indication: RHINORRHOEA
  20. LASIX [Concomitant]
     Active Substance: FUROSEMIDE
     Indication: PERIPHERAL SWELLING
     Dosage: 20 MG, UNK (20MG PO X 3 DAYS)
     Route: 048
     Dates: start: 20140106, end: 20140109
  21. ASPIRIN. [Concomitant]
     Active Substance: ASPIRIN
     Indication: PROPHYLAXIS
     Dosage: 81 MG, 1X/DAY
     Route: 048
     Dates: start: 20140219
  22. ALEVE [Concomitant]
     Active Substance: NAPROXEN SODIUM
     Indication: ARTHRALGIA
     Dosage: UNK (1 PO 6 HR PRN)
     Route: 048
     Dates: start: 20120328, end: 20140623
  23. FIORICET [Concomitant]
     Active Substance: ACETAMINOPHEN\BUTALBITAL\CAFFEINE
     Indication: HEADACHE
     Dosage: (1 TAB PO 4 HR PRN)
     Route: 048
     Dates: start: 20130505, end: 20130528
  24. XALKORI [Suspect]
     Active Substance: CRIZOTINIB
     Dosage: 250 MG, 2X/DAY
     Route: 048
     Dates: start: 20140620
  25. AMBIEN [Concomitant]
     Active Substance: ZOLPIDEM TARTRATE
     Indication: SLEEP DISORDER
     Dosage: 5 MG, UNK (MG Q HS)
     Dates: start: 20111024, end: 20140623
  26. AIRBORNE [Concomitant]
     Active Substance: HERBALS\MINERALS\VITAMINS
     Indication: OROPHARYNGEAL PAIN
     Dosage: UNK (T IN JUICE-PO)
     Route: 048
     Dates: start: 20120602, end: 20120623

REACTIONS (40)
  - Visual impairment [Recovered/Resolved]
  - Diarrhoea [Unknown]
  - Localised oedema [Unknown]
  - Syncope [Recovered/Resolved]
  - Oropharyngeal pain [Recovered/Resolved]
  - Urinary incontinence [Unknown]
  - Fall [Recovered/Resolved]
  - Diarrhoea [Recovered/Resolved]
  - Diarrhoea [Recovered/Resolved]
  - Ear pain [Recovered/Resolved]
  - Arthralgia [Unknown]
  - Headache [Unknown]
  - Aphasia [Recovered/Resolved]
  - Urinary tract infection [Recovered/Resolved]
  - Diarrhoea [Recovered/Resolved]
  - Dizziness [Recovered/Resolved]
  - Sinus bradycardia [Unknown]
  - Nausea [Unknown]
  - Vomiting [Recovered/Resolved]
  - Inflammation [Unknown]
  - Cough [Recovered/Resolved]
  - Vomiting [Recovered/Resolved]
  - Alanine aminotransferase increased [Recovered/Resolved]
  - Diarrhoea [Unknown]
  - Local swelling [Not Recovered/Not Resolved]
  - Gait disturbance [Recovered/Resolved]
  - Rhinorrhoea [Recovered/Resolved]
  - Diarrhoea [Recovered/Resolved]
  - Nausea [Recovered/Resolved]
  - Constipation [Unknown]
  - Joint swelling [Recovered/Resolved]
  - Hypocalcaemia [Recovered/Resolved]
  - Dizziness [Recovered/Resolved]
  - Insomnia [Unknown]
  - Sinus bradycardia [Unknown]
  - Anaemia [Recovered/Resolved]
  - Fall [Recovered/Resolved]
  - Normal pressure hydrocephalus [Recovered/Resolved]
  - Local swelling [Unknown]
  - Sinus bradycardia [Not Recovered/Not Resolved]

NARRATIVE: CASE EVENT DATE: 20110330
